FAERS Safety Report 7548354-1 (Version None)
Quarter: 2011Q2

REPORT INFORMATION
  Report Type: 
  Country: None (occurrence: None)
  Receive Date: 20110615
  Receipt Date: 20110603
  Transmission Date: 20111010
  Serious: Yes (Other)
  Sender: FDA-Public Use
  Company Number: US-US-EMD SERONO, INC.-7063628

PATIENT
  Sex: Female

DRUGS (1)
  1. REBIF [Suspect]
     Indication: PROGRESSIVE RELAPSING MULTIPLE SCLEROSIS
     Route: 058
     Dates: start: 20110119

REACTIONS (6)
  - LUNG DISORDER [None]
  - FEELING ABNORMAL [None]
  - DIAPHRAGMATIC DISORDER [None]
  - INFLUENZA LIKE ILLNESS [None]
  - DYSKINESIA [None]
  - VISUAL IMPAIRMENT [None]
